FAERS Safety Report 10229427 (Version 1)
Quarter: 2014Q2

REPORT INFORMATION
  Report Type: Spontaneous
  Country: IT (occurrence: None)
  Receive Date: 20140609
  Receipt Date: 20140609
  Transmission Date: 20141212
  Serious: Yes (Death)
  Sender: FDA-Public Use
  Company Number: FK201402200

PATIENT
  Age: 62 Year
  Sex: Male

DRUGS (2)
  1. MANNITOL (MANUFACTURER UNKNOWN) (MANNITOL) (MANNITOL) [Suspect]
     Indication: PRODUCT USED FOR UNKNOWN INDICATION
     Route: 041
  2. THYMOGLOBULIN [Suspect]
     Indication: PRODUCT USED FOR UNKNOWN INDICATION
     Route: 041

REACTIONS (3)
  - Anaphylactic shock [None]
  - Reaction to drug excipients [None]
  - Coma [None]
